FAERS Safety Report 23195953 (Version 1)
Quarter: 2023Q4

REPORT INFORMATION
  Report Type: Report from Study
  Country: PT (occurrence: PT)
  Receive Date: 20231117
  Receipt Date: 20231117
  Transmission Date: 20240109
  Serious: Yes (Other)
  Sender: FDA-Public Use
  Company Number: PT-Accord-390324

PATIENT
  Age: 36 Year
  Sex: Female

DRUGS (1)
  1. CISPLATIN [Suspect]
     Active Substance: CISPLATIN
     Indication: Pericardial effusion malignant
     Dosage: DILUTED IN 20 ML OF SALINE
     Route: 032

REACTIONS (2)
  - Atrial fibrillation [Unknown]
  - Off label use [Unknown]
